FAERS Safety Report 12495119 (Version 1)
Quarter: 2016Q2

REPORT INFORMATION
  Report Type: Spontaneous
  Country: NO (occurrence: NO)
  Receive Date: 20160624
  Receipt Date: 20160624
  Transmission Date: 20160815
  Serious: Yes (Other)
  Sender: FDA-Public Use
  Company Number: NO-009507513-1606NOR009583

PATIENT
  Age: 56 Year
  Sex: Male

DRUGS (8)
  1. METOPROLOL TARTRATE. [Concomitant]
     Active Substance: METOPROLOL TARTRATE
     Dosage: 150 MG, QD
     Route: 048
  2. SOMAC [Concomitant]
     Active Substance: PANTOPRAZOLE SODIUM
     Route: 048
  3. ALENDRONATE SODIUM. [Suspect]
     Active Substance: ALENDRONATE SODIUM
     Indication: OSTEOPOROSIS
     Dosage: 70 MG, QW
     Route: 048
     Dates: start: 2009
  4. RAPAMUNE [Concomitant]
     Active Substance: SIROLIMUS
     Dosage: 1 MG, QOD
     Route: 048
  5. PARALGIN FORTE [Concomitant]
     Active Substance: ACETAMINOPHEN\CODEINE PHOSPHATE
     Dosage: ACCORDING TO NEED
     Route: 048
  6. MAREVAN [Concomitant]
     Active Substance: WARFARIN SODIUM
     Route: 048
  7. CALCIGRAN FORTE [Concomitant]
     Route: 048
  8. SIMVASTATIN. [Concomitant]
     Active Substance: SIMVASTATIN
     Dosage: 20 MG, QD
     Route: 048

REACTIONS (2)
  - Osteitis [Recovering/Resolving]
  - Osteonecrosis of jaw [Recovering/Resolving]

NARRATIVE: CASE EVENT DATE: 201207
